FAERS Safety Report 9047484 (Version 1)
Quarter: 2013Q1

REPORT INFORMATION
  Report Type: Report from Study
  Country: US (occurrence: US)
  Receive Date: 20130201
  Receipt Date: 20130201
  Transmission Date: 20140127
  Serious: No
  Sender: FDA-Public Use
  Company Number: US-ABBOTT-12P-163-1027412-00

PATIENT
  Age: 46 Year
  Sex: Female

DRUGS (5)
  1. HUMIRA [Suspect]
     Indication: CROHN^S DISEASE
     Dates: start: 201209
  2. ATENOLOL [Concomitant]
     Indication: HYPERTENSION
     Route: 048
  3. AMILORIDE [Concomitant]
     Indication: HYPERTENSION
  4. HYDROCHLOROTHIAZIDE [Concomitant]
     Indication: HYPERTENSION
     Dosage: 5/50 DAILY
     Route: 048
  5. ESTROGEN PATCH [Concomitant]
     Indication: HORMONE REPLACEMENT THERAPY

REACTIONS (4)
  - Cough [Not Recovered/Not Resolved]
  - Injection site rash [Not Recovered/Not Resolved]
  - Rash erythematous [Not Recovered/Not Resolved]
  - Rash pruritic [Not Recovered/Not Resolved]
